FAERS Safety Report 12694383 (Version 1)
Quarter: 2016Q3

REPORT INFORMATION
  Report Type: Report from Study
  Country: JP (occurrence: JP)
  Receive Date: 20160829
  Receipt Date: 20160829
  Transmission Date: 20161109
  Serious: Yes (Other)
  Sender: FDA-Public Use
  Company Number: JP-GUERBET LLC-1056827

PATIENT
  Age: 51 Year
  Sex: Male

DRUGS (2)
  1. LIPIODOL [Suspect]
     Active Substance: ETHIODIZED OIL
     Indication: THERAPEUTIC EMBOLISATION
     Route: 013
  2. HISTOACRYL [Concomitant]
     Active Substance: ENBUCRILATE
     Route: 013

REACTIONS (3)
  - Splenic infarction [Recovered/Resolved]
  - Application site extravasation [Recovered/Resolved]
  - Off label use [Recovered/Resolved]
